FAERS Safety Report 8578659 (Version 4)
Quarter: 2012Q4

REPORT INFORMATION
  Report Type: 
  Country: GB (occurrence: GB)
  Receive Date: 20120524
  Receipt Date: 20121008
  Transmission Date: 20130627
  Serious: Yes (Congenital Anomaly)
  Sender: FDA-Public Use
  Company Number: GB-VIIV HEALTHCARE LIMITED-A0978627A

PATIENT
  Sex: Female
  Weight: .4 kg

DRUGS (3)
  1. EPZICOM [Suspect]
     Indication: HIV INFECTION
     Dosage: 1TAB per day
     Route: 064
     Dates: start: 20101213
  2. VIRAMUNE [Suspect]
     Indication: HIV INFECTION
     Dosage: 400MGD per day
     Route: 064
     Dates: start: 20101213
  3. FOLATE [Concomitant]
     Indication: SUPPLEMENTATION THERAPY
     Route: 064

REACTIONS (7)
  - Neural tube defect [Unknown]
  - Meningomyelocele [Unknown]
  - Cerebral ventricle dilatation [Unknown]
  - Spina bifida [Unknown]
  - Arnold-Chiari malformation [Unknown]
  - Foetal exposure during pregnancy [Unknown]
  - Maternal drugs affecting foetus [None]
